FAERS Safety Report 9745629 (Version 1)
Quarter: 2013Q4

REPORT INFORMATION
  Report Type: Spontaneous
  Country: US (occurrence: US)
  Receive Date: 20131211
  Receipt Date: 20131211
  Transmission Date: 20140711
  Serious: Yes (Other)
  Sender: FDA-Public Use
  Company Number: US-PFIZER INC-2013347497

PATIENT
  Age: 59 Year
  Sex: Male
  Weight: 81.18 kg

DRUGS (3)
  1. VIAGRA [Suspect]
     Indication: SEXUAL DYSFUNCTION
     Dosage: UNK, AS NEEDED
  2. EFFEXOR XR [Suspect]
     Indication: FEELING OF RELAXATION
     Dosage: 150 MG, 2X/DAY
     Route: 048
  3. ABILIFY [Concomitant]
     Indication: FEELING OF RELAXATION
     Dosage: UNK

REACTIONS (3)
  - Type 2 diabetes mellitus [Unknown]
  - Lower limb fracture [Unknown]
  - Weight decreased [Unknown]
